FAERS Safety Report 8995528 (Version 1)
Quarter: 2013Q1

REPORT INFORMATION
  Report Type: Spontaneous
  Country: US (occurrence: US)
  Receive Date: 20130103
  Receipt Date: 20130103
  Transmission Date: 20140127
  Serious: No
  Sender: FDA-Public Use
  Company Number: US-ABBOTT-12P-163-0899605-00

PATIENT
  Sex: Female
  Weight: 90.8 kg

DRUGS (4)
  1. SYNTHROID [Suspect]
     Indication: HYPOTHYROIDISM
  2. SYNTHROID [Suspect]
  3. LEVOTHYROXINE [Suspect]
     Indication: HYPOTHYROIDISM
  4. AVAPRO [Concomitant]
     Indication: PRODUCT USED FOR UNKNOWN INDICATION

REACTIONS (7)
  - Blood thyroid stimulating hormone abnormal [Recovered/Resolved]
  - Weight increased [Not Recovered/Not Resolved]
  - Slow response to stimuli [Recovered/Resolved]
  - Extrasystoles [Recovered/Resolved]
  - Product taste abnormal [Unknown]
  - Product label issue [Unknown]
  - Product counterfeit [Unknown]
